FAERS Safety Report 20020058 (Version 3)
Quarter: 2021Q4

REPORT INFORMATION
  Report Type: Spontaneous
  Country: JP (occurrence: JP)
  Receive Date: 20211101
  Receipt Date: 20211202
  Transmission Date: 20220303
  Serious: Yes (Other)
  Sender: FDA-Public Use
  Company Number: JP-DSPHARMA-2021DSP016425

PATIENT
  Age: 73 Year
  Sex: Male
  Weight: 54 kg

DRUGS (22)
  1. LATUDA [Suspect]
     Active Substance: LURASIDONE HYDROCHLORIDE
     Indication: Schizophrenia
     Dosage: 40 MG, QD
     Route: 048
     Dates: start: 20210501, end: 20210910
  2. HALOPERIDOL [Suspect]
     Active Substance: HALOPERIDOL
     Indication: Schizophrenia
     Dosage: 0.75 MG, TID
     Route: 048
     Dates: end: 20210430
  3. HALOPERIDOL [Suspect]
     Active Substance: HALOPERIDOL
     Dosage: 0.75 MG, BID
     Route: 048
     Dates: start: 20210501, end: 20210521
  4. AKINETON [Suspect]
     Active Substance: BIPERIDEN HYDROCHLORIDE
     Indication: Schizophrenia
     Dosage: 2 MG, BID
     Route: 048
     Dates: end: 20210618
  5. AKINETON [Suspect]
     Active Substance: BIPERIDEN HYDROCHLORIDE
     Dosage: 1 MG, BID
     Route: 048
     Dates: start: 20210619, end: 20210716
  6. AKINETON [Suspect]
     Active Substance: BIPERIDEN HYDROCHLORIDE
     Dosage: 1 MG, BID
     Route: 048
     Dates: start: 20210717, end: 20210813
  7. AKINETON [Suspect]
     Active Substance: BIPERIDEN HYDROCHLORIDE
     Dosage: 1 MG, BID
     Route: 048
     Dates: start: 20210814, end: 20211022
  8. AKINETON [Suspect]
     Active Substance: BIPERIDEN HYDROCHLORIDE
     Dosage: 1 MG, TID
     Route: 048
     Dates: start: 20211023
  9. LEVOMEPROMAZINE [Concomitant]
     Active Substance: LEVOMEPROMAZINE
     Indication: Schizophrenia
     Dosage: 5 MG, QD
     Route: 048
  10. FLUNITRAZEPAM [Concomitant]
     Active Substance: FLUNITRAZEPAM
     Indication: Schizophrenia
     Dosage: 2 MG, QD
     Route: 048
  11. SILODOSIN [Concomitant]
     Active Substance: SILODOSIN
     Indication: Benign prostatic hyperplasia
     Dosage: 4 MG, BID
     Route: 048
  12. LANSOPRAZOLE [Concomitant]
     Active Substance: LANSOPRAZOLE
     Indication: Chronic gastritis
     Dosage: 15 MG, QD
     Route: 048
  13. ALLOPURINOL [Concomitant]
     Active Substance: ALLOPURINOL
     Indication: Hyperuricaemia
     Dosage: 100 MG, QD
     Route: 048
  14. DIAZEPAM [Concomitant]
     Active Substance: DIAZEPAM
     Indication: Schizophrenia
     Dosage: 2 MG, TID
     Route: 048
     Dates: end: 20210618
  15. DIAZEPAM [Concomitant]
     Active Substance: DIAZEPAM
     Dosage: 1 MG, TID
     Route: 048
     Dates: start: 20210619, end: 20210716
  16. Sm [Concomitant]
     Indication: Chronic gastritis
     Dosage: 1 DF, TID
     Route: 048
  17. SODIUM CHLORIDE [Concomitant]
     Active Substance: SODIUM CHLORIDE
     Indication: Hyponatraemia
     Dosage: 1 G, TID
     Route: 048
     Dates: start: 202109
  18. REXULTI [Concomitant]
     Active Substance: BREXPIPRAZOLE
     Indication: Schizophrenia
     Dosage: 1 MG, QD
     Route: 048
     Dates: start: 20210910, end: 20210913
  19. REXULTI [Concomitant]
     Active Substance: BREXPIPRAZOLE
     Dosage: 2 MG, QD
     Route: 048
     Dates: start: 20210914, end: 20211001
  20. ABILIFY [Concomitant]
     Active Substance: ARIPIPRAZOLE
     Indication: Schizophrenia
     Dosage: 12 MG, QD
     Route: 048
     Dates: start: 20211001, end: 20211022
  21. ABILIFY [Concomitant]
     Active Substance: ARIPIPRAZOLE
     Dosage: 15 MG, QD
     Route: 048
     Dates: start: 20211023
  22. MAGNESIUM OXIDE [Concomitant]
     Active Substance: MAGNESIUM OXIDE
     Indication: Constipation
     Dosage: 250 MG, BID
     Route: 048
     Dates: start: 20211023

REACTIONS (3)
  - Hallucination, auditory [Recovering/Resolving]
  - Parkinsonism [Recovering/Resolving]
  - Parkinsonism [Recovered/Resolved]

NARRATIVE: CASE EVENT DATE: 20210430
